FAERS Safety Report 9432506 (Version 1)
Quarter: 2013Q3

REPORT INFORMATION
  Report Type: Spontaneous
  Country: US (occurrence: None)
  Receive Date: 20130730
  Receipt Date: 20130730
  Transmission Date: 20140515
  Serious: Yes (Life-Threatening, Hospitalization, Disabling)
  Sender: FDA-Public Use
  Company Number: None

PATIENT
  Age: 51 Year
  Sex: Male
  Weight: 111.13 kg

DRUGS (1)
  1. TOPIRAMATE [Suspect]
     Indication: EPILEPSY
     Route: 048
     Dates: start: 20130603, end: 20130618

REACTIONS (9)
  - Headache [None]
  - Grand mal convulsion [None]
  - Compression fracture [None]
  - Lumbar vertebral fracture [None]
  - Pneumonia aspiration [None]
  - Humerus fracture [None]
  - Postictal state [None]
  - Product substitution issue [None]
  - Product quality issue [None]
